FAERS Safety Report 8195550-9 (Version None)
Quarter: 2012Q1

REPORT INFORMATION
  Report Type: 
  Country: None (occurrence: None)
  Receive Date: 20120308
  Receipt Date: 20120305
  Transmission Date: 20120608
  Serious: No
  Sender: FDA-Public Use
  Company Number: PHHY2012JP015343

PATIENT
  Age: 61 Year
  Sex: Female

DRUGS (4)
  1. CARBAMAZEPINE [Suspect]
     Indication: EPILEPSY
     Dosage: 700 MG
     Dates: start: 20001214
  2. PHENYTOIN [Suspect]
     Dosage: 280 MG
     Route: 048
     Dates: start: 20001214
  3. PHENOBARBITAL TAB [Suspect]
     Indication: EPILEPSY
     Dosage: 160 MG
     Route: 048
     Dates: start: 20001214
  4. CLONAZEPAM [Suspect]
     Indication: EPILEPSY
     Dosage: 3 MG
     Route: 048
     Dates: start: 20001214

REACTIONS (1)
  - DRUG INEFFECTIVE [None]
